FAERS Safety Report 23313978 (Version 3)
Quarter: 2024Q3

REPORT INFORMATION
  Report Type: Spontaneous
  Country: IT (occurrence: IT)
  Receive Date: 20231219
  Receipt Date: 20240916
  Transmission Date: 20241017
  Serious: Yes (Other)
  Sender: AMGEN
  Company Number: IT-AMGEN-ITASP2023224333

PATIENT
  Age: 20 Year
  Sex: Male

DRUGS (24)
  1. ETANERCEPT [Suspect]
     Active Substance: ETANERCEPT
     Indication: Haemophagocytic lymphohistiocytosis
     Dosage: 25 TO 50 MG/KG/WEEK (0.8 MG/KG/WEEK)
     Route: 058
     Dates: start: 200507, end: 200512
  2. ETANERCEPT [Suspect]
     Active Substance: ETANERCEPT
     Dosage: 25 TO 50 MG/KG/WEEK (0.8 MG/KG/WEEK)
     Route: 058
     Dates: start: 200901, end: 201308
  3. ETANERCEPT [Suspect]
     Active Substance: ETANERCEPT
     Dosage: 25 TO 50 MG/KG/WEEK (0.8 MG/KG/WEEK)
     Route: 058
     Dates: start: 201310, end: 201803
  4. ADALIMUMAB [Suspect]
     Active Substance: ADALIMUMAB
     Indication: Haemophagocytic lymphohistiocytosis
     Dosage: 20 MG/2 WEEKS
     Route: 058
     Dates: start: 200608
  5. ADALIMUMAB [Suspect]
     Active Substance: ADALIMUMAB
     Dosage: 40 MG/2 WEEKS
     Route: 058
     Dates: start: 201308, end: 201310
  6. METHOTREXATE SODIUM [Suspect]
     Active Substance: METHOTREXATE SODIUM
     Indication: Haemophagocytic lymphohistiocytosis
     Dosage: 15 MG/M2, WEEKLY
     Route: 058
     Dates: start: 200408, end: 200603
  7. METHOTREXATE SODIUM [Suspect]
     Active Substance: METHOTREXATE SODIUM
     Dosage: 15 MG/M2, WEEKLY
     Route: 058
     Dates: start: 201007
  8. THALIDOMIDE [Suspect]
     Active Substance: THALIDOMIDE
     Indication: Haemophagocytic lymphohistiocytosis
     Dosage: 2.5 MG/KG, DAILY
     Route: 048
     Dates: start: 200408, end: 200507
  9. THALIDOMIDE [Suspect]
     Active Substance: THALIDOMIDE
     Dosage: 2.5 MG/KG, DAILY
     Route: 048
     Dates: start: 200508, end: 200512
  10. THALIDOMIDE [Suspect]
     Active Substance: THALIDOMIDE
     Dosage: 2.5 MG/KG, DAILY
     Route: 048
     Dates: start: 200606, end: 200608
  11. THALIDOMIDE [Suspect]
     Active Substance: THALIDOMIDE
     Dosage: 2.5 MG/KG, DAILY
     Route: 048
     Dates: start: 200807, end: 200901
  12. CYCLOSPORINE [Suspect]
     Active Substance: CYCLOSPORINE
     Indication: Haemophagocytic lymphohistiocytosis
     Dosage: 3-4 MG/KG/DAY ORAL OR 2 MG/KG/DAY
     Route: 048
     Dates: start: 200512, end: 200603
  13. CYCLOSPORINE [Suspect]
     Active Substance: CYCLOSPORINE
     Dosage: 3-4 MG/KG/DAY ORAL OR 2 MG/KG/DAY
     Route: 048
     Dates: start: 200606, end: 201011
  14. ANAKINRA [Suspect]
     Active Substance: ANAKINRA
     Indication: Haemophagocytic lymphohistiocytosis
     Dosage: 2 - 5 MG/KG/DAY UP TO 100 MG/DAY
     Route: 042
     Dates: start: 200507
  15. ANAKINRA [Suspect]
     Active Substance: ANAKINRA
     Dosage: 2 - 5 MG/KG/DAY UP TO 100 MG/DAY
     Route: 042
     Dates: start: 200512
  16. ANAKINRA [Suspect]
     Active Substance: ANAKINRA
     Dosage: 2 - 5 MG/KG/DAY UP TO 100 MG/DAY
     Route: 042
     Dates: start: 200804, end: 200806
  17. ANAKINRA [Suspect]
     Active Substance: ANAKINRA
     Dosage: 2 - 5 MG/KG/DAY UP TO 100 MG/DAY
     Route: 042
     Dates: start: 201310
  18. TOCILIZUMAB [Suspect]
     Active Substance: TOCILIZUMAB
     Indication: Haemophagocytic lymphohistiocytosis
     Dosage: 12 MG/KG/2 WEEKS
     Route: 065
     Dates: start: 200701, end: 200702
  19. ABATACEPT [Suspect]
     Active Substance: ABATACEPT
     Indication: Haemophagocytic lymphohistiocytosis
     Dosage: 10 MG/KG EVERY 4 WEEKS
     Route: 042
     Dates: start: 200807, end: 200812
  20. BARICITINIB [Suspect]
     Active Substance: BARICITINIB
     Indication: Haemophagocytic lymphohistiocytosis
     Dosage: 4 MG, DAILY
     Route: 048
     Dates: start: 202007, end: 202205
  21. PREDNISONE [Suspect]
     Active Substance: PREDNISONE
     Indication: Haemophagocytic lymphohistiocytosis
     Dosage: 0.08 MG/KG
     Route: 048
  22. PREDNISONE [Suspect]
     Active Substance: PREDNISONE
     Dosage: 0.08 MILLIGRAM/KILOGRAM, QD
     Route: 048
  23. CANAKINUMAB [Suspect]
     Active Substance: CANAKINUMAB
     Indication: Haemophagocytic lymphohistiocytosis
     Dosage: 300 MG/4 WEEKS
     Route: 065
     Dates: start: 201803, end: 202007
  24. AZATHIOPRINE [Suspect]
     Active Substance: AZATHIOPRINE
     Indication: Haemophagocytic lymphohistiocytosis
     Dosage: 2 MG/KG, DAILY
     Route: 048
     Dates: start: 200603, end: 200606

REACTIONS (2)
  - Drug ineffective for unapproved indication [Unknown]
  - Off label use [Unknown]
